FAERS Safety Report 7751387-3 (Version None)
Quarter: 2011Q3

REPORT INFORMATION
  Report Type: 
  Country: None (occurrence: None)
  Receive Date: 20110914
  Receipt Date: 20110914
  Transmission Date: 20111222
  Serious: Yes (Hospitalization)
  Sender: FDA-Public Use
  Company Number: CN-BAYER-2011-085466

PATIENT
  Age: 47 Year
  Sex: Female

DRUGS (1)
  1. ULTRAVIST 370 [Suspect]
     Indication: PRODUCT USED FOR UNKNOWN INDICATION
     Dosage: 50 ML, ONCE
     Route: 042
     Dates: start: 20110914, end: 20110914

REACTIONS (7)
  - FACE OEDEMA [None]
  - HYPERSENSITIVITY [None]
  - HYPOAESTHESIA ORAL [None]
  - DYSGEUSIA [None]
  - PALPITATIONS [None]
  - CHAPPED LIPS [None]
  - DYSPNOEA [None]
